FAERS Safety Report 21735962 (Version 1)
Quarter: 2022Q4

REPORT INFORMATION
  Report Type: Spontaneous
  Country: US (occurrence: US)
  Receive Date: 20221215
  Receipt Date: 20221215
  Transmission Date: 20230113
  Serious: No
  Sender: FDA-Public Use
  Company Number: US-PFIZER INC-PV202200120246

PATIENT

DRUGS (3)
  1. PREMARIN [Suspect]
     Active Substance: ESTROGENS, CONJUGATED
     Indication: Lichen sclerosus
     Dosage: THREE TIMES A WEEK
  2. PREMARIN [Suspect]
     Active Substance: ESTROGENS, CONJUGATED
     Indication: Vulvitis
     Dosage: ONCE A WEEK OR ONCE EVERY OTHER WEEK
  3. PREMARIN [Suspect]
     Active Substance: ESTROGENS, CONJUGATED
     Indication: Pain

REACTIONS (3)
  - Cardiac disorder [Unknown]
  - Intentional product misuse [Unknown]
  - Off label use [Unknown]
